FAERS Safety Report 18207802 (Version 1)
Quarter: 2020Q3

REPORT INFORMATION
  Report Type: Report from Study
  Country: None (occurrence: CA)
  Receive Date: 20200828
  Receipt Date: 20200828
  Transmission Date: 20201103
  Serious: Yes (Hospitalization)
  Sender: FDA-Public Use
  Company Number: CA-HLS-202001185

PATIENT
  Age: 55 Year
  Sex: Male

DRUGS (9)
  1. CIPRALEX [Concomitant]
     Active Substance: ESCITALOPRAM OXALATE
     Route: 065
  2. SEROQUEL [Concomitant]
     Active Substance: QUETIAPINE FUMARATE
     Route: 065
  3. CEFTRIAXONE FOR INJECTION USP [Concomitant]
     Active Substance: CEFTRIAXONE
     Dosage: POWDER FOR SOLUTION INTRAMUSCULAR
     Route: 065
  4. ATROPINE. [Concomitant]
     Active Substance: ATROPINE
     Dosage: NOT SPECIFIED
     Route: 065
  5. CIPROFLOXACIN. [Concomitant]
     Active Substance: CIPROFLOXACIN
     Dosage: NOT SPECIFIED
     Route: 065
  6. CLOZARIL [Suspect]
     Active Substance: CLOZAPINE
     Indication: PRODUCT USED FOR UNKNOWN INDICATION
     Dosage: 50.0 MILLIGRAM
     Route: 048
  7. CLOZARIL [Suspect]
     Active Substance: CLOZAPINE
     Indication: PRODUCT USED FOR UNKNOWN INDICATION
     Dosage: 700.0 MILLIGRAM
     Route: 048
  8. EPIVAL [Concomitant]
     Active Substance: DIVALPROEX SODIUM
     Dosage: TABLET (ENTERIC?COATED)
     Route: 065
  9. AZITHROMYCIN ANHYDROUS. [Concomitant]
     Active Substance: AZITHROMYCIN ANHYDROUS
     Dosage: NOT SPECIFIED
     Route: 065

REACTIONS (7)
  - Insomnia [Unknown]
  - Salivary hypersecretion [Unknown]
  - Blood disorder [Unknown]
  - Pneumonia [Unknown]
  - Altered state of consciousness [Unknown]
  - Diarrhoea [Unknown]
  - Drug interaction [Unknown]
